FAERS Safety Report 16850913 (Version 1)
Quarter: 2019Q3

REPORT INFORMATION
  Report Type: Report from Study
  Country: DE (occurrence: DE)
  Receive Date: 20190925
  Receipt Date: 20190925
  Transmission Date: 20191005
  Serious: Yes (Other)
  Sender: FDA-Public Use
  Company Number: PHHY2019DE221668

PATIENT
  Sex: Female
  Weight: 62 kg

DRUGS (4)
  1. KISQALI [Suspect]
     Active Substance: RIBOCICLIB
     Dosage: 600 MG, QD, SCHEMA 21 DAYS INTAKE, THAN 7 DAYS PAUSE
     Route: 048
     Dates: start: 20190812, end: 20190909
  2. KISQALI [Suspect]
     Active Substance: RIBOCICLIB
     Indication: BREAST CANCER METASTATIC
     Dosage: 600 MG, QD, SCHEMA 21 DAYS INTAKE, THAN 7 DAYS PAUSE
     Route: 048
     Dates: start: 20190715, end: 20190811
  3. LETROZOLE. [Suspect]
     Active Substance: LETROZOLE
     Indication: BREAST CANCER METASTATIC
     Dosage: 2.5 MG, QD
     Route: 048
     Dates: start: 20190715
  4. KISQALI [Suspect]
     Active Substance: RIBOCICLIB
     Dosage: 600 MG, QD, SCHEMA 21 DAYS INTAKE, THAN 7 DAYS PAUSE
     Route: 048
     Dates: start: 20190910

REACTIONS (2)
  - Liver function test increased [Not Recovered/Not Resolved]
  - Gamma-glutamyltransferase increased [Unknown]

NARRATIVE: CASE EVENT DATE: 20190715
